FAERS Safety Report 13086997 (Version 1)
Quarter: 2017Q1

REPORT INFORMATION
  Report Type: Spontaneous
  Country: FR (occurrence: FR)
  Receive Date: 20170105
  Receipt Date: 20170105
  Transmission Date: 20170428
  Serious: Yes (Death, Hospitalization, Other)
  Sender: FDA-Public Use
  Company Number: FR-BAXTER-2016BAX065308

PATIENT
  Age: 47 Year
  Sex: Male
  Weight: 87 kg

DRUGS (8)
  1. DOXORUBICIN TEVA [Suspect]
     Active Substance: DOXORUBICIN
     Indication: MYCOSIS FUNGOIDES
     Dosage: FIRST CYCLE, DAY 1
     Route: 042
     Dates: start: 20160912, end: 20160912
  2. ENDOXAN 1000 MG, POUDRE POUR SOLUTION INJECTABLE [Suspect]
     Active Substance: CYCLOPHOSPHAMIDE
     Dosage: FOURTH CYCLE, DAY 1
     Route: 042
     Dates: start: 20161024, end: 20161024
  3. VINCRISTINE HOSPIRA [Suspect]
     Active Substance: VINCRISTINE
     Dosage: FOURTH CYCLE, DAY 1
     Route: 042
     Dates: start: 20161024, end: 20161024
  4. VINCRISTINE HOSPIRA [Suspect]
     Active Substance: VINCRISTINE
     Indication: MYCOSIS FUNGOIDES
     Dosage: FIRST CYCLE, DAY 1
     Route: 042
     Dates: start: 20160912, end: 20160912
  5. DOXORUBICIN TEVA [Suspect]
     Active Substance: DOXORUBICIN
     Dosage: FOURTH CYCLE, DAY 1
     Route: 042
     Dates: start: 20161024, end: 20161024
  6. ETOPOSIDE TEVA [Suspect]
     Active Substance: ETOPOSIDE
     Indication: MYCOSIS FUNGOIDES
     Dosage: FIRST CYCLE, DAY 1 TO DAY 3
     Route: 042
     Dates: start: 20160912, end: 20160914
  7. ETOPOSIDE TEVA [Suspect]
     Active Substance: ETOPOSIDE
     Dosage: FOURTH CYCLE, DAY 1
     Route: 042
     Dates: start: 20161024, end: 20161026
  8. ENDOXAN 1000 MG, POUDRE POUR SOLUTION INJECTABLE [Suspect]
     Active Substance: CYCLOPHOSPHAMIDE
     Indication: MYCOSIS FUNGOIDES
     Dosage: FIRST CYCLE, DAY 1
     Route: 042
     Dates: start: 20160912, end: 20160912

REACTIONS (5)
  - Bacterial sepsis [Unknown]
  - Septic shock [Unknown]
  - Cardiac arrest [Fatal]
  - Febrile bone marrow aplasia [Fatal]
  - Respiratory failure [Fatal]

NARRATIVE: CASE EVENT DATE: 20161030
